FAERS Safety Report 4619982-8 (Version None)
Quarter: 2005Q1

REPORT INFORMATION
  Report Type: 
  Country: None (occurrence: None)
  Receive Date: 20050324
  Receipt Date: 20050318
  Transmission Date: 20050727
  Serious: Yes (Life-Threatening)
  Sender: FDA-Public Use
  Company Number: 2005AP01490

PATIENT
  Age: 69 Year
  Sex: Male
  Weight: 62.1 kg

DRUGS (9)
  1. DIPRIVAN [Suspect]
     Indication: SEDATION
     Dosage: TOTAL: 8300 MG
     Dates: start: 20050222, end: 20050225
  2. PENTCILLIN [Concomitant]
  3. VANMYCIN [Concomitant]
  4. NICARPINE [Concomitant]
  5. ELASPOL [Concomitant]
  6. PRIMAXIN [Concomitant]
  7. FENTANEST [Concomitant]
  8. SEVOFLURANE [Concomitant]
  9. ISOZOL [Concomitant]

REACTIONS (7)
  - BRAIN DAMAGE [None]
  - BRAIN OEDEMA [None]
  - CEREBRAL DISORDER [None]
  - COMA [None]
  - CONVULSION [None]
  - DEPRESSED LEVEL OF CONSCIOUSNESS [None]
  - ELECTROENCEPHALOGRAM ABNORMAL [None]
